FAERS Safety Report 9559379 (Version 1)
Quarter: 2013Q3

REPORT INFORMATION
  Report Type: Spontaneous
  Country: US (occurrence: None)
  Receive Date: 20130906
  Receipt Date: 20130906
  Transmission Date: 20140515
  Serious: Yes (Other)
  Sender: FDA-Public Use
  Company Number: 163-POMAL-13042153

PATIENT
  Age: 62 Year
  Sex: Female
  Weight: 81.3 kg

DRUGS (27)
  1. POMALYST (POMALIDOMIDE) (CAPSULES) [Suspect]
     Indication: PLASMA CELL MYELOMA
     Dosage: 21 IN 28 D
     Route: 048
     Dates: start: 20130305
  2. BACLOFEN [Concomitant]
  3. CARAFATE [Concomitant]
  4. LEVOTHYROXINE [Concomitant]
  5. FLUCONAZOLE [Concomitant]
  6. DEXAMETHASONE [Concomitant]
  7. OXYCODONE [Concomitant]
  8. BACTRIM [Concomitant]
  9. OMEPRAZOLE [Concomitant]
  10. OXYCODONE/ACETAMINOPHEN [Concomitant]
  11. RANITIDINE [Concomitant]
  12. SENNOSIDES DOCUSATE SODIUM [Concomitant]
  13. TURMERIC [Concomitant]
  14. VITAMIN B12 [Concomitant]
  15. VITAMIN B6 [Concomitant]
  16. CALCIUM [Concomitant]
  17. CHOLECALCIFEROL [Concomitant]
  18. DALTEPARIN [Concomitant]
  19. DOCUSATE SODIUM [Concomitant]
  20. FAMCICLOVIR [Concomitant]
  21. GRANISETRON [Concomitant]
  22. HERBAL DRUGS [Concomitant]
  23. LACTULOSE [Concomitant]
  24. LOPERAMIDE [Concomitant]
  25. LIDOCAINE-PRILOCAINE [Concomitant]
  26. PLATELET [Concomitant]
  27. RED BLOOD CELLS [Concomitant]

REACTIONS (5)
  - Platelet count decreased [None]
  - Plasma cell myeloma [None]
  - Burning sensation [None]
  - Restless legs syndrome [None]
  - Neuropathy peripheral [None]
